FAERS Safety Report 6249656-1 (Version None)
Quarter: 2009Q2

REPORT INFORMATION
  Report Type: 
  Country: None (occurrence: None)
  Receive Date: 20090629
  Receipt Date: 20090623
  Transmission Date: 20091009
  Serious: Yes (Life-Threatening, Hospitalization)
  Sender: FDA-Public Use
  Company Number: GB-PFIZER INC-2009230648

PATIENT

DRUGS (6)
  1. HYDROCORTISONE AND HYDROCORTISONE ACETATE AND HYDROCORTISONE CIPIONATE [Suspect]
     Dosage: 40 MG, UNK
     Route: 042
     Dates: start: 20090421
  2. REMICADE [Suspect]
     Indication: CROHN'S DISEASE
     Dosage: 100 MG, UNK
     Dates: start: 20090502
  3. AMOXICILLIN [Concomitant]
     Indication: SEPSIS
     Dosage: 420 MG, UNK
     Route: 042
     Dates: start: 20090429, end: 20090510
  4. ENOXAPARIN SODIUM [Concomitant]
     Indication: SEPSIS
     Dosage: 10 MG, UNK
     Route: 058
     Dates: start: 20090421
  5. GENTAMICIN [Concomitant]
     Indication: SEPSIS
     Dosage: 52.5 MG, UNK
     Route: 042
     Dates: start: 20090501, end: 20090510
  6. GENTAMICIN [Concomitant]
     Dosage: 75 MG, UNK
     Route: 042
     Dates: start: 20090429, end: 20090501

REACTIONS (1)
  - REVERSIBLE POSTERIOR LEUKOENCEPHALOPATHY SYNDROME [None]
